FAERS Safety Report 15213484 (Version 1)
Quarter: 2018Q3

REPORT INFORMATION
  Report Type: Spontaneous
  Country: US (occurrence: US)
  Receive Date: 20180702
  Receipt Date: 20180702
  Transmission Date: 20181010
  Serious: Yes (Other)
  Sender: FDA-Public Use
  Company Number: None

PATIENT
  Age: 37 Year
  Sex: Male
  Weight: 85.5 kg

DRUGS (5)
  1. DULOXETINE. [Concomitant]
     Active Substance: DULOXETINE
  2. ALLOPURINOL. [Concomitant]
     Active Substance: ALLOPURINOL
  3. INDOMETHACIN. [Concomitant]
     Active Substance: INDOMETHACIN
  4. SUBOXONE [Suspect]
     Active Substance: BUPRENORPHINE HYDROCHLORIDE\NALOXONE HYDROCHLORIDE
     Indication: PAIN
     Dosage: ?          QUANTITY:1 NALOXONE;?
     Route: 060
  5. SINGULAIR [Concomitant]
     Active Substance: MONTELUKAST SODIUM

REACTIONS (6)
  - Tooth loss [None]
  - Unevaluable event [None]
  - Narcolepsy [None]
  - Dental caries [None]
  - Prescribed overdose [None]
  - Road traffic accident [None]

NARRATIVE: CASE EVENT DATE: 20130602
